FAERS Safety Report 7394889-4 (Version None)
Quarter: 2011Q2

REPORT INFORMATION
  Report Type: 
  Country: None (occurrence: None)
  Receive Date: 20110405
  Receipt Date: 20110330
  Transmission Date: 20111010
  Serious: Yes (Other)
  Sender: FDA-Public Use
  Company Number: B0690785A

PATIENT
  Sex: Female
  Weight: 49 kg

DRUGS (9)
  1. RISPERDAL [Concomitant]
     Indication: SCHIZOPHRENIA
     Route: 048
     Dates: start: 20090918, end: 20091111
  2. HALCION [Concomitant]
     Indication: INSOMNIA
     Route: 048
     Dates: start: 20090918, end: 20091111
  3. TYKERB [Suspect]
     Indication: BREAST CANCER
     Dosage: 1250MG PER DAY
     Route: 048
     Dates: start: 20090919, end: 20091111
  4. CYCLOPHOSPHAMIDE [Concomitant]
     Indication: BREAST CANCER
     Dosage: 50MG PER DAY
     Route: 048
     Dates: start: 20090924, end: 20091111
  5. MYSLEE [Concomitant]
     Indication: INSOMNIA
     Route: 048
     Dates: start: 20090918, end: 20091111
  6. ADALAT [Concomitant]
     Indication: ESSENTIAL HYPERTENSION
     Route: 048
     Dates: start: 20090918, end: 20091111
  7. XELODA [Suspect]
     Dosage: 1200MG PER DAY
     Route: 048
     Dates: start: 20090925, end: 20091111
  8. LOXOPROFEN [Concomitant]
     Indication: BACK PAIN
     Route: 048
     Dates: start: 20090918, end: 20091111
  9. ZANTAC [Concomitant]
     Indication: GASTRIC ULCER
     Route: 048
     Dates: start: 20090918, end: 20091111

REACTIONS (1)
  - DIARRHOEA [None]
